FAERS Safety Report 14585486 (Version 5)
Quarter: 2018Q2

REPORT INFORMATION
  Report Type: Spontaneous
  Country: US (occurrence: US)
  Receive Date: 20180301
  Receipt Date: 20180514
  Transmission Date: 20180711
  Serious: No
  Sender: FDA-Public Use
  Company Number: US-PFIZER INC-2018080932

PATIENT
  Age: 62 Year
  Sex: Female
  Weight: 72.57 kg

DRUGS (9)
  1. TRAZODONE [Concomitant]
     Active Substance: TRAZODONE HYDROCHLORIDE
     Dosage: UNK , 1X/DAY [50 2@HS]
  2. DOLOPHINE [Concomitant]
     Active Substance: METHADONE HYDROCHLORIDE
     Dosage: UNK, 2X/DAY [5 BID]
  3. LYRICA [Suspect]
     Active Substance: PREGABALIN
     Dosage: 150 MG, UNK
  4. DILANTIN [Concomitant]
     Active Substance: PHENYTOIN
     Dosage: UNK, 1X/DAY [100 4@HS]
  5. CLONIDINE. [Concomitant]
     Active Substance: CLONIDINE
     Dosage: UNK, DAILY [0.1 3-4 X/D]
  6. LYRICA [Suspect]
     Active Substance: PREGABALIN
     Indication: PERIPHERAL NERVE INJURY
     Dosage: 200 MG, 1X/DAY [ONCE A DAY BY MOUTH, (200)]
     Route: 048
     Dates: start: 201802, end: 201802
  7. LYRICA [Suspect]
     Active Substance: PREGABALIN
     Indication: BACK PAIN
     Dosage: 50 MG, UNK
     Route: 048
     Dates: start: 2018
  8. TRAZODONE [Concomitant]
     Active Substance: TRAZODONE HYDROCHLORIDE
     Indication: SLEEP DISORDER
     Dosage: 50MG 1-2 TABLETS BY MOUTH AT NIGHT AS NEEDED
     Route: 048
  9. LYRICA [Suspect]
     Active Substance: PREGABALIN
     Indication: NEURALGIA
     Dosage: 100 MG, UNK
     Route: 048

REACTIONS (4)
  - Intentional product misuse [Unknown]
  - Sedation [Unknown]
  - Somnolence [Unknown]
  - Fatigue [Unknown]

NARRATIVE: CASE EVENT DATE: 2018
